FAERS Safety Report 8334870-1 (Version None)
Quarter: 2012Q2

REPORT INFORMATION
  Report Type: 
  Country: None (occurrence: None)
  Receive Date: 20120503
  Receipt Date: 20120426
  Transmission Date: 20120825
  Serious: Yes (Hospitalization)
  Sender: FDA-Public Use
  Company Number: AU-B.I. PHARMACEUTICALS,INC./RIDGEFIELD-2012-AU-00815AU

PATIENT
  Age: 6 Decade
  Sex: Male

DRUGS (1)
  1. PRADAXA [Suspect]
     Dates: end: 20120401

REACTIONS (2)
  - CHEST PAIN [None]
  - MYOCARDIAL ISCHAEMIA [None]
